FAERS Safety Report 10232672 (Version 1)
Quarter: 2014Q2

REPORT INFORMATION
  Report Type: Spontaneous
  Country: FR (occurrence: FR)
  Receive Date: 20140612
  Receipt Date: 20140612
  Transmission Date: 20141212
  Serious: Yes (Hospitalization)
  Sender: FDA-Public Use
  Company Number: PHHY2014FR071285

PATIENT
  Age: 36 Year
  Sex: Female
  Weight: 46 kg

DRUGS (4)
  1. VANCOMYCIN SANDOZ [Suspect]
     Indication: FEBRILE BONE MARROW APLASIA
     Route: 042
     Dates: start: 20130404, end: 20130409
  2. PIPERACILLINE/TAZOBACTAM MYLAN NOS [Suspect]
     Indication: FEBRILE BONE MARROW APLASIA
     Route: 042
     Dates: start: 20130402, end: 20130409
  3. ACUPAN [Suspect]
     Indication: PAIN
     Route: 042
     Dates: start: 201303
  4. FLAGYL [Concomitant]
     Dosage: 500 MG, TID
     Route: 065
     Dates: start: 20130408

REACTIONS (1)
  - Hepatitis [Recovering/Resolving]
